FAERS Safety Report 5192339-X (Version None)
Quarter: 2006Q4

REPORT INFORMATION
  Report Type: 
  Country: None (occurrence: None)
  Receive Date: 20061227
  Receipt Date: 20061128
  Transmission Date: 20070319
  Serious: Yes (Hospitalization)
  Sender: FDA-Public Use
  Company Number: FR-ABBOTT-06P-056-0351864-00

PATIENT
  Age: 48 Year
  Sex: Male

DRUGS (5)
  1. RITONAVIR SOFT GELATIN CAPSULES [Suspect]
     Indication: ACQUIRED IMMUNODEFICIENCY SYNDROME
     Route: 048
     Dates: start: 20051227
  2. CYAMEMAZINE [Suspect]
     Indication: DEPRESSION
     Route: 048
  3. ESCITALOPRAM OXALATE [Suspect]
     Indication: DEPRESSION
     Route: 048
  4. FOSAMPRENAVIR [Suspect]
     Indication: ACQUIRED IMMUNODEFICIENCY SYNDROME
     Route: 048
     Dates: start: 20051227
  5. ABACAVIR/LAMIVUDINE [Suspect]
     Indication: ACQUIRED IMMUNODEFICIENCY SYNDROME
     Route: 048
     Dates: start: 20051227

REACTIONS (9)
  - ABASIA [None]
  - COORDINATION ABNORMAL [None]
  - FACIAL PALSY [None]
  - HYPOTENSION [None]
  - LOSS OF CONSCIOUSNESS [None]
  - MALAISE [None]
  - NEUROGENIC BLADDER [None]
  - PARAESTHESIA [None]
  - PYRAMIDAL TRACT SYNDROME [None]
